FAERS Safety Report 7958727-0 (Version None)
Quarter: 2011Q4

REPORT INFORMATION
  Report Type: 
  Country: None (occurrence: None)
  Receive Date: 20111206
  Receipt Date: 20101215
  Transmission Date: 20120403
  Serious: Yes (Hospitalization, Other)
  Sender: FDA-Public Use
  Company Number: GB-AMGEN-GBRSP2010013527

PATIENT
  Sex: Female

DRUGS (3)
  1. HYDROXYCHLOROQUINE [Suspect]
     Indication: RHEUMATOID ARTHRITIS
     Dosage: UNK
  2. ENBREL [Suspect]
     Indication: RHEUMATOID ARTHRITIS
     Dosage: UNK
     Dates: start: 20020101
  3. SULFASALAZINE [Suspect]
     Indication: RHEUMATOID ARTHRITIS
     Dosage: UNK

REACTIONS (13)
  - DEPRESSION [None]
  - UNDERWEIGHT [None]
  - DRUG INEFFECTIVE [None]
  - APHAGIA [None]
  - PAIN [None]
  - INSOMNIA [None]
  - PERICARDIAL EFFUSION [None]
  - BEDRIDDEN [None]
  - INFLUENZA LIKE ILLNESS [None]
  - INFECTION [None]
  - HYPERHIDROSIS [None]
  - MALAISE [None]
  - FEELING OF BODY TEMPERATURE CHANGE [None]
